FAERS Safety Report 21206554 (Version 1)
Quarter: 2022Q3

REPORT INFORMATION
  Report Type: Spontaneous
  Country: US (occurrence: None)
  Receive Date: 20220811
  Receipt Date: 20220811
  Transmission Date: 20221027
  Serious: Yes (Hospitalization)
  Sender: FDA-Public Use
  Company Number: None

PATIENT
  Age: 41 Year
  Sex: Male
  Weight: 103 kg

DRUGS (10)
  1. MAGNESIUM CITRATE SALINE LAXATIVE [Suspect]
     Active Substance: MAGNESIUM CITRATE
     Indication: Constipation
     Dosage: FREQUENCY : AS NEEDED;?
     Route: 048
     Dates: start: 20220806, end: 20220806
  2. DOXYCYCLINE HYCLATE [Concomitant]
     Active Substance: DOXYCYCLINE HYCLATE
     Dates: start: 20211229, end: 20220806
  3. COMPAZINE [Concomitant]
     Active Substance: PROCHLORPERAZINE MALEATE
     Dates: start: 20220805
  4. OXYCODONE [Concomitant]
     Active Substance: OXYCODONE
     Dates: start: 20220705
  5. MOVANTIK [Concomitant]
     Active Substance: NALOXEGOL OXALATE
     Dates: start: 20220730
  6. LACTULOSE [Concomitant]
     Active Substance: LACTULOSE
     Dates: start: 20220719
  7. OLANZAPINE [Concomitant]
     Active Substance: OLANZAPINE
     Dates: start: 20220705
  8. LISINOPRIL [Concomitant]
     Active Substance: LISINOPRIL
     Dates: start: 20220118
  9. ZOFRAN [Concomitant]
     Active Substance: ONDANSETRON HYDROCHLORIDE
     Dates: start: 20211020
  10. XARELTO [Concomitant]
     Active Substance: RIVAROXABAN
     Dates: start: 20211020

REACTIONS (4)
  - Feeling abnormal [None]
  - Nausea [None]
  - Abdominal pain [None]
  - Hypophagia [None]

NARRATIVE: CASE EVENT DATE: 20220806
